FAERS Safety Report 13964416 (Version 3)
Quarter: 2018Q1

REPORT INFORMATION
  Report Type: Report from Study
  Country: None (occurrence: US)
  Receive Date: 20170913
  Receipt Date: 20180131
  Transmission Date: 20180508
  Serious: Yes (Hospitalization)
  Sender: FDA-Public Use
  Company Number: US-ABBVIE-17K-163-2097570-00

PATIENT
  Sex: Female

DRUGS (1)
  1. HUMIRA [Suspect]
     Active Substance: ADALIMUMAB
     Indication: CROHN^S DISEASE
     Route: 058

REACTIONS (11)
  - Blister [Recovered/Resolved]
  - White blood cell count increased [Unknown]
  - Gastritis [Unknown]
  - Crohn^s disease [Recovered/Resolved]
  - Pancreatitis [Recovered/Resolved]
  - Drug ineffective [Unknown]
  - Vomiting [Unknown]
  - Crohn^s disease [Recovered/Resolved]
  - Stress [Unknown]
  - Depression [Unknown]
  - Arthritis enteropathic [Unknown]

NARRATIVE: CASE EVENT DATE: 2016
